FAERS Safety Report 23223831 (Version 3)
Quarter: 2025Q2

REPORT INFORMATION
  Report Type: Spontaneous
  Country: ES (occurrence: ES)
  Receive Date: 20231124
  Receipt Date: 20250620
  Transmission Date: 20250717
  Serious: Yes (Hospitalization, Other)
  Sender: AUROBINDO
  Company Number: ES-ESTEVE-2023-02851

PATIENT
  Age: 62 Year
  Sex: Male

DRUGS (18)
  1. BUPIVACAINE [Suspect]
     Active Substance: BUPIVACAINE
     Indication: Cancer pain
     Dosage: 2 MILLIGRAM, ONCE A DAY
     Route: 065
  2. BUPIVACAINE [Suspect]
     Active Substance: BUPIVACAINE
     Dosage: 1.4 MILLIGRAM, ONCE A DAY
     Route: 065
  3. BUPIVACAINE [Suspect]
     Active Substance: BUPIVACAINE
     Dosage: 2 MICROGRAM, ONCE A DAY
     Route: 065
  4. BUPIVACAINE [Suspect]
     Active Substance: BUPIVACAINE
     Dosage: 2.4 MICROGRAM, ONCE A DAY
     Route: 065
     Dates: start: 20230120, end: 20230125
  5. BUPIVACAINE [Suspect]
     Active Substance: BUPIVACAINE
     Dosage: 1.4 MICROGRAM, ONCE A DAY
     Route: 065
     Dates: start: 20230125
  6. ACETAMINOPHEN [Suspect]
     Active Substance: ACETAMINOPHEN
     Indication: Abdominal pain
     Route: 065
  7. MORPHINE [Suspect]
     Active Substance: MORPHINE
     Indication: Cancer pain
     Dosage: 0.5 MILLIGRAM, ONCE A DAY
     Route: 065
     Dates: start: 20230118, end: 20230120
  8. MORPHINE [Suspect]
     Active Substance: MORPHINE
     Dosage: 0.35 MILLIGRAM, ONCE A DAY
     Route: 065
     Dates: start: 20230125
  9. MORPHINE [Suspect]
     Active Substance: MORPHINE
     Dosage: 0.69 MICROGRAM, ONCE A DAY
     Route: 065
     Dates: start: 20230120, end: 20230125
  10. METAMIZOLE [Suspect]
     Active Substance: METAMIZOLE
     Indication: Abdominal pain
     Route: 065
  11. ZICONOTIDE [Suspect]
     Active Substance: ZICONOTIDE
     Indication: Cancer pain
     Dosage: 0.7 MICROGRAM, ONCE A DAY
     Route: 037
     Dates: start: 20230118, end: 20230120
  12. ZICONOTIDE [Suspect]
     Active Substance: ZICONOTIDE
     Dosage: 0.49 MICROGRAM, ONCE A DAY
     Route: 037
     Dates: start: 20230125
  13. ZICONOTIDE [Suspect]
     Active Substance: ZICONOTIDE
     Dosage: 0.9 MICROGRAM, ONCE A DAY
     Route: 037
     Dates: start: 20230120, end: 20230125
  14. MORPHINE [Concomitant]
     Active Substance: MORPHINE
     Indication: Pain
     Dosage: 560 MILLIGRAM, ONCE A DAY (560 MG/ DAY; DELAYED RELEASE ORAL MORPHINE)
     Route: 065
  15. MORPHINE [Concomitant]
     Active Substance: MORPHINE
     Route: 048
  16. FENTANYL [Concomitant]
     Active Substance: FENTANYL
     Indication: Pain
     Route: 060
  17. FENTANYL [Concomitant]
     Active Substance: FENTANYL
     Route: 065
  18. METHADONE [Concomitant]
     Active Substance: METHADONE HYDROCHLORIDE
     Indication: Pain
     Route: 048

REACTIONS (5)
  - Suicidal ideation [Recovered/Resolved]
  - Affect lability [Recovered/Resolved]
  - Asthenia [Recovered/Resolved]
  - Drug ineffective [Unknown]
  - Off label use [Not Recovered/Not Resolved]

NARRATIVE: CASE EVENT DATE: 20230118
